FAERS Safety Report 24566010 (Version 1)
Quarter: 2024Q4

REPORT INFORMATION
  Report Type: Other
  Country: US (occurrence: JP)
  Receive Date: 20241030
  Receipt Date: 20241030
  Transmission Date: 20250114
  Serious: Yes (Hospitalization)
  Sender: SAPTALIS PHARMACEUTICALS LLC
  Company Number: JP-Saptalis Pharmaceuticals LLC-2162458

PATIENT
  Age: 83 Year
  Sex: Female

DRUGS (2)
  1. LITHIUM CITRATE [Suspect]
     Active Substance: LITHIUM CITRATE
     Indication: Bipolar disorder
  2. MAGNESIUM OXIDE [Concomitant]
     Active Substance: MAGNESIUM OXIDE

REACTIONS (1)
  - Toxicity to various agents [Recovered/Resolved]
